FAERS Safety Report 23447341 (Version 1)
Quarter: 2024Q1

REPORT INFORMATION
  Report Type: Spontaneous
  Country: US (occurrence: US)
  Receive Date: 20240126
  Receipt Date: 20240126
  Transmission Date: 20240410
  Serious: Yes (Other)
  Sender: FDA-Public Use
  Company Number: US-BAYER-2024A011651

PATIENT
  Age: 74 Year
  Sex: Male

DRUGS (1)
  1. NUBEQA [Suspect]
     Active Substance: DAROLUTAMIDE
     Dosage: UNK
     Dates: end: 202401

REACTIONS (4)
  - Pollakiuria [None]
  - Prostatic specific antigen increased [None]
  - Urinary incontinence [None]
  - Adverse drug reaction [None]
